FAERS Safety Report 13950479 (Version 1)
Quarter: 2017Q3

REPORT INFORMATION
  Report Type: Spontaneous
  Country: CA (occurrence: CA)
  Receive Date: 20170908
  Receipt Date: 20170908
  Transmission Date: 20171128
  Serious: Yes (Other)
  Sender: FDA-Public Use
  Company Number: CA-GILEAD-2017-0290137

PATIENT
  Age: 47 Year
  Sex: Female

DRUGS (2)
  1. CAYSTON [Suspect]
     Active Substance: AZTREONAM
     Dosage: 1 DF, BID
     Route: 055
  2. CAYSTON [Suspect]
     Active Substance: AZTREONAM
     Indication: CYSTIC FIBROSIS
     Dosage: 1 DF, TID
     Route: 055

REACTIONS (4)
  - Amnesia [Not Recovered/Not Resolved]
  - Intentional product misuse [Unknown]
  - Memory impairment [Not Recovered/Not Resolved]
  - Systemic lupus erythematosus [Unknown]
